FAERS Safety Report 7420807-6 (Version None)
Quarter: 2011Q2

REPORT INFORMATION
  Report Type: 
  Country: None (occurrence: None)
  Receive Date: 20110418
  Receipt Date: 20110411
  Transmission Date: 20111010
  Serious: Yes (Death, Hospitalization)
  Sender: FDA-Public Use
  Company Number: NL-ROCHE-769351

PATIENT
  Sex: Male

DRUGS (6)
  1. CAPECITABINE [Suspect]
     Indication: COLORECTAL CANCER
     Dosage: DATE OF LAST CYCLE: 05 NOVEMBER 2010
     Route: 048
     Dates: start: 20101006
  2. PREDNISONE [Concomitant]
  3. OXALIPLATIN [Suspect]
     Indication: COLORECTAL CANCER
     Dosage: DATE OF LAST CYCLE: 03 NOVEMBER 2010
     Route: 042
     Dates: start: 20101006
  4. NEXIUM [Concomitant]
  5. BEVACIZUMAB [Suspect]
     Indication: COLORECTAL CANCER
     Dosage: DATE OF LAST CYCLE: 03 NOVEMBER 2010
     Route: 042
     Dates: start: 20101006
  6. METFORMIN [Concomitant]

REACTIONS (2)
  - COLON CANCER METASTATIC [None]
  - MALAISE [None]
